FAERS Safety Report 5511261-X (Version None)
Quarter: 2007Q4

REPORT INFORMATION
  Report Type: 
  Country: None (occurrence: None)
  Receive Date: 20071109
  Receipt Date: 20071101
  Transmission Date: 20080405
  Serious: Yes (Hospitalization)
  Sender: FDA-Public Use
  Company Number: B0494618A

PATIENT
  Sex: Female
  Weight: 50 kg

DRUGS (2)
  1. PANADOL [Suspect]
     Indication: PAIN
     Dosage: 500MG EIGHT TIMES PER DAY
     Route: 048
     Dates: start: 20070201
  2. VITAMIN E [Concomitant]
     Indication: ANTICOAGULANT THERAPY

REACTIONS (4)
  - ANOREXIA [None]
  - ASTHENIA [None]
  - CEREBROVASCULAR ACCIDENT [None]
  - LISTLESS [None]
